FAERS Safety Report 10111228 (Version 1)
Quarter: 2014Q2

REPORT INFORMATION
  Report Type: Spontaneous
  Country: US (occurrence: None)
  Receive Date: 20140421
  Receipt Date: 20140421
  Transmission Date: 20141212
  Serious: No
  Sender: FDA-Public Use
  Company Number: AEGR000285

PATIENT
  Sex: Female
  Weight: 65.3 kg

DRUGS (11)
  1. JUXTAPID (LOMITAPIDE) CAPSULE, 5MG [Suspect]
     Indication: TYPE IIA HYPERLIPIDAEMIA
     Route: 048
     Dates: start: 20131230
  2. LIVALO (PITAVASTATIN CALCIUM) [Concomitant]
  3. CRESTOR (ROSUVASTATIN CALCIUM) [Concomitant]
  4. TICLOPIDINE (TICLOPIDINE) [Concomitant]
  5. NITROGLYCERIN (GLYCERYL TRINITRATE) [Concomitant]
  6. NITROSTAT (GLYCERYL TRINITRATE) [Concomitant]
  7. ASPIRIN (ACETYLSALICYLIC ACID) [Concomitant]
  8. VITAMIN D3 (COLECALCIFEROL) [Concomitant]
  9. VITAMIN E (TOCOPHEROL) [Concomitant]
  10. LORAZEPAM (LORAZEPAM) [Concomitant]
  11. CLONAZEPAM (CLONAZEPAM) [Concomitant]

REACTIONS (1)
  - Flatulence [None]
